FAERS Safety Report 8927329 (Version 4)
Quarter: 2013Q1

REPORT INFORMATION
  Report Type: Spontaneous
  Country: CN (occurrence: CN)
  Receive Date: 20121127
  Receipt Date: 20130102
  Transmission Date: 20140127
  Serious: Yes (Other)
  Sender: FDA-Public Use
  Company Number: PHHY2012CN106918

PATIENT
  Age: 42 Year
  Sex: Female

DRUGS (4)
  1. DIOVAN [Suspect]
     Indication: HYPERTENSION
     Dosage: 80 MG, QD
     Route: 048
     Dates: start: 20121105
  2. ATENOLAN [Concomitant]
     Indication: PALPITATIONS
     Dosage: 12.5 MG, BID
     Route: 048
     Dates: start: 1998
  3. ESTAZOLAM [Concomitant]
     Indication: INSOMNIA
     Dosage: 1 DF, QD
     Route: 048
  4. ESTAZOLAM [Concomitant]
     Dosage: ONE AND A HALF TABLETS DAILY WHEN SERIOUS

REACTIONS (6)
  - Myocardial ischaemia [Not Recovered/Not Resolved]
  - Chest discomfort [Not Recovered/Not Resolved]
  - Chest pain [Not Recovered/Not Resolved]
  - Extrasystoles [Not Recovered/Not Resolved]
  - Dizziness [Recovering/Resolving]
  - Wrong technique in drug usage process [Unknown]
